FAERS Safety Report 25731514 (Version 2)
Quarter: 2025Q3

REPORT INFORMATION
  Report Type: Report from Study
  Country: EU (occurrence: EU)
  Receive Date: 20250827
  Receipt Date: 20250910
  Transmission Date: 20251021
  Serious: Yes (Other)
  Sender: SANDOZ
  Company Number: EU-SANDOZ-SDZ2025HU062005

PATIENT
  Age: 67 Year
  Sex: Female

DRUGS (1)
  1. FILGRASTIM [Suspect]
     Active Substance: FILGRASTIM
     Indication: Neutropenia
     Route: 065
     Dates: start: 2025, end: 202505

REACTIONS (2)
  - Liver function test increased [Recovering/Resolving]
  - Swollen tongue [Unknown]

NARRATIVE: CASE EVENT DATE: 20250601
